FAERS Safety Report 19697141 (Version 4)
Quarter: 2022Q2

REPORT INFORMATION
  Report Type: Report from Study
  Country: JP (occurrence: JP)
  Receive Date: 20210813
  Receipt Date: 20220607
  Transmission Date: 20220721
  Serious: Yes (Hospitalization)
  Sender: FDA-Public Use
  Company Number: JP-ASTELLAS-2021JP015940

PATIENT
  Age: 72 Year
  Sex: Female
  Weight: 53 kg

DRUGS (9)
  1. ENFORTUMAB VEDOTIN [Suspect]
     Active Substance: ENFORTUMAB VEDOTIN
     Indication: Non-small cell lung cancer
     Route: 065
     Dates: start: 20210325, end: 20220502
  2. ICOSAPENT [Concomitant]
     Active Substance: ICOSAPENT
     Indication: Thrombocytosis
     Dosage: 900 MG, ONCE DAILY, ATER DINNER
     Route: 048
     Dates: start: 2007
  3. ROSUVASTATIN [Concomitant]
     Active Substance: ROSUVASTATIN
     Indication: Hyperlipidaemia
     Dosage: 2.5 MG, ONCE DAILY, AFTER DINNER
     Route: 048
     Dates: start: 20171224
  4. GLYCOSAMINOGLYCANS [Concomitant]
     Active Substance: GLYCOSAMINOGLYCANS
     Indication: Pruritus
     Dosage: UNK UNK, APPROPRIATE TIME
     Route: 061
     Dates: start: 20210226
  5. FUROSEMIDE [Concomitant]
     Active Substance: FUROSEMIDE
     Indication: Oedema peripheral
     Route: 048
     Dates: start: 20210401
  6. MINODRONIC ACID [Concomitant]
     Active Substance: MINODRONIC ACID
     Indication: Osteoporosis prophylaxis
     Route: 048
     Dates: start: 20210421, end: 20211124
  7. ZINC [Concomitant]
     Active Substance: ZINC
     Indication: Taste disorder
     Dosage: 25 MG, TWICE DAILY, IN THE MORNING AND EVENING
     Route: 048
     Dates: start: 20210428
  8. NEXIUM [Concomitant]
     Active Substance: ESOMEPRAZOLE MAGNESIUM
     Indication: Gastrooesophageal reflux disease
     Dosage: 20 MG, ONCE DAILY, AFTER DINNER
     Route: 048
     Dates: start: 20210527
  9. KOLANTYL [Concomitant]
     Active Substance: DICYCLOMINE HYDROCHLORIDE
     Indication: Gastrooesophageal reflux disease
     Dosage: 1 DF, THRICE DAILY, AFTER EVERY MEALS
     Route: 048
     Dates: start: 20210527

REACTIONS (1)
  - Dizziness postural [Recovered/Resolved]

NARRATIVE: CASE EVENT DATE: 20210811
